FAERS Safety Report 10196912 (Version 1)
Quarter: 2014Q2

REPORT INFORMATION
  Report Type: Spontaneous
  Country: US (occurrence: None)
  Receive Date: 20140523
  Receipt Date: 20140523
  Transmission Date: 20141212
  Serious: Yes (Hospitalization)
  Sender: FDA-Public Use
  Company Number: None

PATIENT
  Age: 72 Year
  Sex: Male
  Weight: 76.7 kg

DRUGS (2)
  1. CETUXIMAB [Suspect]
  2. DOCETAXEL [Suspect]

REACTIONS (5)
  - Candida infection [None]
  - Haemoglobin decreased [None]
  - Haematocrit decreased [None]
  - Weight decreased [None]
  - Gastrostomy [None]
